FAERS Safety Report 8175213-6 (Version None)
Quarter: 2012Q1

REPORT INFORMATION
  Report Type: 
  Country: None (occurrence: None)
  Receive Date: 20120229
  Receipt Date: 20120221
  Transmission Date: 20120608
  Serious: Yes (Death)
  Sender: FDA-Public Use
  Company Number: SE-PFIZER INC-2011297095

PATIENT
  Age: 47 Year
  Sex: Male
  Weight: 108 kg

DRUGS (10)
  1. VERAPAMIL [Concomitant]
     Dosage: UNK
     Dates: start: 20100401
  2. OMEPRAZOLE [Concomitant]
     Indication: GASTRITIS PROPHYLAXIS
     Dosage: UNK
     Dates: start: 20111108
  3. BUMETANIDE [Concomitant]
     Dosage: UNK
     Dates: start: 20100401
  4. PARACETAMOL [Concomitant]
  5. TRAMADOL [Concomitant]
     Dosage: UNK
     Dates: start: 20111114
  6. ACETYLCYSTEINE [Concomitant]
  7. PREDNISOLONE [Concomitant]
     Indication: MIGRAINE
     Dosage: UNK
     Dates: start: 20111108
  8. MEDROL [Concomitant]
     Indication: MIGRAINE
     Dosage: UNK
     Dates: start: 20111108, end: 20111121
  9. ZOPICLONE [Concomitant]
     Indication: INSOMNIA
     Dosage: UNK
  10. CRIZOTINIB [Suspect]
     Indication: NON-SMALL CELL LUNG CANCER
     Dosage: 250 MG, 2X/DAY
     Route: 048
     Dates: start: 20111117

REACTIONS (1)
  - DEATH [None]
